FAERS Safety Report 5477572-1 (Version None)
Quarter: 2007Q3

REPORT INFORMATION
  Report Type: 
  Country: None (occurrence: None)
  Receive Date: 20070925
  Receipt Date: 20070713
  Transmission Date: 20080115
  Serious: No
  Sender: FDA-Public Use
  Company Number: 2007US001639

PATIENT
  Age: 64 Year
  Sex: Male

DRUGS (3)
  1. VESICARE [Suspect]
     Indication: BLADDER SPASM
     Dosage: 5 MG, UID/QD, ORAL, 10 MG, BID, ORAL
     Route: 048
     Dates: start: 20070613
  2. VITAMINS [Concomitant]
  3. ASPIRIN [Concomitant]

REACTIONS (1)
  - DRUG INEFFECTIVE FOR UNAPPROVED INDICATION [None]
